FAERS Safety Report 9970803 (Version 1)
Quarter: 2014Q1

REPORT INFORMATION
  Report Type: Report from Study
  Country: US (occurrence: US)
  Receive Date: 20140306
  Receipt Date: 20140306
  Transmission Date: 20141002
  Serious: No
  Sender: FDA-Public Use
  Company Number: US-ABBVIE-13P-163-1150706-00

PATIENT
  Age: 50 Year
  Sex: Female

DRUGS (12)
  1. HUMIRA [Suspect]
     Indication: COLITIS ULCERATIVE
     Dates: start: 20130823, end: 20130823
  2. HUMIRA [Suspect]
     Dates: start: 20130906, end: 20130906
  3. HUMIRA [Suspect]
     Dates: start: 20130920
  4. LIALDA [Concomitant]
     Indication: COLITIS ULCERATIVE
     Dosage: 1.2GM DAILY
  5. CYMBALTA [Concomitant]
     Indication: ANXIETY
     Dosage: 60MG DAILY
  6. CYMBALTA [Concomitant]
     Indication: DEPRESSION
  7. XANAX [Concomitant]
     Indication: ANXIETY
     Dosage: AS REQUIRED
  8. MVI [Concomitant]
     Indication: PRODUCT USED FOR UNKNOWN INDICATION
     Dosage: DAILY
  9. VITAMIN D [Concomitant]
     Indication: PRODUCT USED FOR UNKNOWN INDICATION
     Dosage: DAILY
  10. VITAMIN C [Concomitant]
     Indication: PRODUCT USED FOR UNKNOWN INDICATION
  11. VITAMIN B12 [Concomitant]
     Indication: PRODUCT USED FOR UNKNOWN INDICATION
     Dosage: DAILY
  12. XANAX [Concomitant]
     Indication: ANAEMIA

REACTIONS (3)
  - Back pain [Recovered/Resolved]
  - Neck pain [Recovered/Resolved]
  - Pyrexia [Not Recovered/Not Resolved]
